FAERS Safety Report 9349833 (Version 1)
Quarter: 2013Q2

REPORT INFORMATION
  Report Type: Spontaneous
  Country: US (occurrence: None)
  Receive Date: 20130611
  Receipt Date: 20130611
  Transmission Date: 20140414
  Serious: Yes (Congenital Anomaly, Other)
  Sender: FDA-Public Use
  Company Number: 2013P1006707

PATIENT
  Sex: Female

DRUGS (1)
  1. ISOTRETINOIN [Suspect]
     Route: 064

REACTIONS (9)
  - Neuroblastoma [None]
  - Congenital anomaly [None]
  - Exposure during pregnancy [None]
  - Anotia [None]
  - External auditory canal atresia [None]
  - Congenital choroid plexus cyst [None]
  - Congenital nose malformation [None]
  - Patent ductus arteriosus [None]
  - VIIth nerve paralysis [None]
